FAERS Safety Report 4986766-0 (Version None)
Quarter: 2006Q2

REPORT INFORMATION
  Report Type: 
  Country: None (occurrence: None)
  Receive Date: 20060428
  Receipt Date: 20060420
  Transmission Date: 20061013
  Serious: Yes (Other)
  Sender: FDA-Public Use
  Company Number: NO-MERCK-0604NOR00006

PATIENT
  Sex: Female

DRUGS (2)
  1. CELECOXIB [Suspect]
     Route: 065
  2. VIOXX [Suspect]
     Route: 065

REACTIONS (3)
  - ARTHRALGIA [None]
  - CEREBROVASCULAR ACCIDENT [None]
  - HYPERSENSITIVITY [None]
